FAERS Safety Report 17977120 (Version 1)
Quarter: 2020Q3

REPORT INFORMATION
  Report Type: Other
  Country: IR (occurrence: IR)
  Receive Date: 20200702
  Receipt Date: 20200702
  Transmission Date: 20201103
  Serious: Yes (Life-Threatening, Hospitalization, Disabling)
  Sender: FDA-Public Use
  Company Number: IR-NOSTRUM LABORATORIES, INC.-2087004

PATIENT
  Age: 34 Year
  Sex: Male

DRUGS (1)
  1. METHADONE HYDROCHLORIDE TABLETS USP, 5 MG AND 10 MG [Suspect]
     Active Substance: METHADONE HYDROCHLORIDE
     Indication: INTENTIONAL OVERDOSE
     Route: 048

REACTIONS (6)
  - Intentional overdose [Recovered/Resolved with Sequelae]
  - Thrombocytopenia [Unknown]
  - Acute kidney injury [Unknown]
  - Drug-induced liver injury [Recovered/Resolved]
  - Deafness neurosensory [Not Recovered/Not Resolved]
  - Rhabdomyolysis [Recovered/Resolved]
